FAERS Safety Report 9553460 (Version 1)
Quarter: 2013Q3

REPORT INFORMATION
  Report Type: Spontaneous
  Country: US (occurrence: US)
  Receive Date: 20130925
  Receipt Date: 20130925
  Transmission Date: 20140515
  Serious: No
  Sender: FDA-Public Use
  Company Number: US-TEVA-434484USA

PATIENT
  Age: 35 Year
  Sex: Female
  Weight: 65.83 kg

DRUGS (3)
  1. PLAN B ONE-STEP [Suspect]
     Indication: POST COITAL CONTRACEPTION
     Dosage: 1.5 MILLIGRAM DAILY;
     Route: 048
     Dates: start: 20130916, end: 20130916
  2. PRENATAL VITAMINS [Concomitant]
     Indication: SUPPLEMENTATION THERAPY
  3. MINI PILL [Concomitant]
     Indication: CONTRACEPTION
     Route: 048

REACTIONS (2)
  - Exposure during breast feeding [Unknown]
  - Pelvic pain [Not Recovered/Not Resolved]
